FAERS Safety Report 18798007 (Version 2)
Quarter: 2021Q2

REPORT INFORMATION
  Report Type: Report from Study
  Country: IN (occurrence: IN)
  Receive Date: 20210128
  Receipt Date: 20210615
  Transmission Date: 20210717
  Serious: Yes (Other)
  Sender: FDA-Public Use
  Company Number: NVSC2021IN017589

PATIENT
  Sex: Female

DRUGS (2)
  1. REVOLADE [Suspect]
     Active Substance: ELTROMBOPAG OLAMINE
     Indication: IMMUNE THROMBOCYTOPENIA
     Dosage: 50 MG, QD
     Route: 048
     Dates: start: 20201221, end: 20210118
  2. REVOLADE [Suspect]
     Active Substance: ELTROMBOPAG OLAMINE
     Dosage: 25 MG, QD
     Route: 048
     Dates: start: 20210414

REACTIONS (1)
  - Hepatic infection [Unknown]
